FAERS Safety Report 8290267-4 (Version None)
Quarter: 2012Q2

REPORT INFORMATION
  Report Type: 
  Country: None (occurrence: None)
  Receive Date: 20120417
  Receipt Date: 20120402
  Transmission Date: 20120825
  Serious: Yes (Other)
  Sender: FDA-Public Use
  Company Number: FR-WATSON-2012-05930

PATIENT
  Age: 38 Year
  Sex: Female

DRUGS (2)
  1. TACROLIMUS [Suspect]
     Indication: IMMUNOSUPPRESSANT DRUG THERAPY
     Dosage: UNK
     Route: 065
  2. SIROLIMUS [Suspect]
     Indication: IMMUNOSUPPRESSANT DRUG THERAPY
     Dosage: UNK
     Route: 065

REACTIONS (9)
  - THROMBOTIC MICROANGIOPATHY [None]
  - CERVIX CARCINOMA STAGE 0 [None]
  - BLOOD TRIGLYCERIDES INCREASED [None]
  - LUNG DISORDER [None]
  - HERPES SIMPLEX [None]
  - MOLLUSCUM CONTAGIOSUM [None]
  - PAPILLOMA VIRAL INFECTION [None]
  - CHOLANGITIS [None]
  - RENAL IMPAIRMENT [None]
